FAERS Safety Report 10035428 (Version 2)
Quarter: 2014Q1

REPORT INFORMATION
  Report Type: Spontaneous
  Country: US (occurrence: US)
  Receive Date: 20140325
  Receipt Date: 20140325
  Transmission Date: 20141002
  Serious: Yes (Hospitalization)
  Sender: FDA-Public Use
  Company Number: US-SUCAMPO PHARMA AMERICAS, INC-SPI201400165

PATIENT
  Sex: Male

DRUGS (4)
  1. AMITIZA [Suspect]
     Dosage: 24 MCG, QD
  2. BUSPAR [Concomitant]
  3. FLONASE [Concomitant]
  4. UNKNOWN [Concomitant]

REACTIONS (1)
  - Pancreatitis [Unknown]
